FAERS Safety Report 11855455 (Version 1)
Quarter: 2015Q4

REPORT INFORMATION
  Report Type: Spontaneous
  Country: US (occurrence: US)
  Receive Date: 20151221
  Receipt Date: 20151221
  Transmission Date: 20160305
  Serious: Yes (Other)
  Sender: FDA-Public Use
  Company Number: PHEH2015US025970

PATIENT
  Age: 54 Year
  Sex: Female
  Weight: 73.57 kg

DRUGS (9)
  1. ZOMETA [Suspect]
     Active Substance: ZOLEDRONIC ACID
     Dosage: UNK
     Route: 065
  2. FEMARA [Suspect]
     Active Substance: LETROZOLE
     Indication: INVASIVE LOBULAR BREAST CARCINOMA
     Dosage: UNK
     Route: 065
     Dates: start: 2006, end: 2015
  3. ZOCOR [Concomitant]
     Active Substance: SIMVASTATIN
     Indication: PRODUCT USED FOR UNKNOWN INDICATION
     Dosage: 20 MG, QHS
     Route: 048
  4. GLUCOTROL [Concomitant]
     Active Substance: GLIPIZIDE
     Indication: PRODUCT USED FOR UNKNOWN INDICATION
     Dosage: 5 MG, BID (BEFORE MEALS)
     Route: 048
  5. AROMASIN [Suspect]
     Active Substance: EXEMESTANE
     Indication: PRODUCT USED FOR UNKNOWN INDICATION
     Route: 065
  6. GLUCOPHAGE [Concomitant]
     Active Substance: METFORMIN HYDROCHLORIDE
     Indication: PRODUCT USED FOR UNKNOWN INDICATION
     Dosage: 850 MG, BID (WITH MEALS)
     Route: 048
  7. AFINITOR [Suspect]
     Active Substance: EVEROLIMUS
     Route: 065
  8. ASPIRIN. [Concomitant]
     Active Substance: ASPIRIN
     Indication: PRODUCT USED FOR UNKNOWN INDICATION
     Dosage: 325 MG, QD (DAILY)
     Route: 048
  9. LEVEMIR [Concomitant]
     Active Substance: INSULIN DETEMIR
     Indication: PRODUCT USED FOR UNKNOWN INDICATION
     Dosage: 20 OT, QHS
     Route: 058

REACTIONS (16)
  - Blood pressure systolic increased [Unknown]
  - Back pain [Unknown]
  - Anxiety [Unknown]
  - Metastases to bone [Unknown]
  - Hypoaesthesia [Unknown]
  - Arthralgia [Unknown]
  - Body mass index increased [Unknown]
  - Nervousness [Unknown]
  - Weight decreased [Unknown]
  - Drug ineffective [Unknown]
  - Invasive lobular breast carcinoma [Unknown]
  - Dysphoria [Unknown]
  - Blood alkaline phosphatase increased [Not Recovered/Not Resolved]
  - Malignant neoplasm progression [Unknown]
  - Lymphadenopathy [Unknown]
  - Heart rate increased [Unknown]

NARRATIVE: CASE EVENT DATE: 20061115
